FAERS Safety Report 17133702 (Version 2)
Quarter: 2019Q4

REPORT INFORMATION
  Report Type: Spontaneous
  Country: US (occurrence: US)
  Receive Date: 20191210
  Receipt Date: 20191212
  Transmission Date: 20200122
  Serious: No
  Sender: FDA-Public Use
  Company Number: US-FRESENIUS KABI-FK201913623

PATIENT
  Age: 55 Year
  Sex: Male
  Weight: 95 kg

DRUGS (6)
  1. HEPARIN SODIUM INJECTION, USP [Suspect]
     Active Substance: HEPARIN SODIUM
     Indication: ANTICOAGULANT THERAPY
     Dosage: IN THE ED IMMEDIATELY PRIOR TO CATH
     Route: 040
  2. HEPARIN SODIUM INJECTION, USP [Suspect]
     Active Substance: HEPARIN SODIUM
     Dosage: IN THE ED IMMEDIATELY PRIOR TO CATH
     Route: 040
  3. HEPARIN SODIUM INJECTION, USP [Suspect]
     Active Substance: HEPARIN SODIUM
     Dosage: IN CATH LAB
     Route: 040
     Dates: start: 20191021, end: 20191021
  4. TIROFIBAN [Concomitant]
     Active Substance: TIROFIBAN
     Indication: PRODUCT USED FOR UNKNOWN INDICATION
     Route: 065
  5. HEPARIN SODIUM INJECTION, USP [Suspect]
     Active Substance: HEPARIN SODIUM
     Dosage: IN CATH LAB
     Route: 040
     Dates: start: 20191021, end: 20191021
  6. HEPARIN SODIUM INJECTION, USP [Suspect]
     Active Substance: HEPARIN SODIUM
     Dosage: IN CATH LAB
     Route: 040
     Dates: start: 20191021, end: 20191021

REACTIONS (1)
  - Drug ineffective [Recovered/Resolved]

NARRATIVE: CASE EVENT DATE: 20191021
